FAERS Safety Report 9837352 (Version 2)
Quarter: 2014Q1

REPORT INFORMATION
  Report Type: Spontaneous
  Country: US (occurrence: US)
  Receive Date: 20140123
  Receipt Date: 20140205
  Transmission Date: 20141002
  Serious: No
  Sender: FDA-Public Use
  Company Number: US-PFIZER INC-2014019256

PATIENT
  Age: 49 Year
  Sex: Female
  Weight: 86.17 kg

DRUGS (6)
  1. LYRICA [Suspect]
     Indication: FIBROMYALGIA
     Dosage: 500MG ONE IN MORNING AND 2 IN NIGHT, 2X/DAY
     Dates: start: 20131217, end: 201401
  2. GABAPENTIN [Suspect]
     Indication: NEUROPATHY PERIPHERAL
     Dosage: UNK, 3X/DAY
     Dates: start: 201303, end: 201311
  3. FLUOXETINE [Concomitant]
     Indication: ANXIETY
     Dosage: UNK
  4. METFORMIN [Concomitant]
     Indication: DIABETES MELLITUS
     Dosage: UNK
  5. ALPRAZOLAM [Concomitant]
     Indication: ANXIETY
     Dosage: UNK
  6. ZOLPIDEM TARTRATE [Concomitant]
     Indication: ANXIETY
     Dosage: UNK
     Dates: start: 201401

REACTIONS (2)
  - Drug ineffective [Unknown]
  - Fatigue [Unknown]
